FAERS Safety Report 6597090-7 (Version None)
Quarter: 2010Q1

REPORT INFORMATION
  Report Type: 
  Country: None (occurrence: None)
  Receive Date: 20100223
  Receipt Date: 20100212
  Transmission Date: 20100710
  Serious: Yes (Other)
  Sender: FDA-Public Use
  Company Number: US-PFIZER INC-2010020183

PATIENT
  Sex: Male
  Weight: 72.574 kg

DRUGS (1)
  1. VIAGRA [Suspect]
     Indication: ERECTILE DYSFUNCTION
     Dosage: FREQUENCY: AS NEEDED,
     Route: 048
     Dates: start: 20100125, end: 20100209

REACTIONS (6)
  - LIMB INJURY [None]
  - MOBILITY DECREASED [None]
  - OEDEMA PERIPHERAL [None]
  - PAIN [None]
  - TENDON DISORDER [None]
  - TENOSYNOVITIS [None]
